FAERS Safety Report 6765742-1 (Version None)
Quarter: 2010Q2

REPORT INFORMATION
  Report Type: 
  Country: None (occurrence: None)
  Receive Date: 20100611
  Receipt Date: 20100601
  Transmission Date: 20101027
  Serious: Yes (Other)
  Sender: FDA-Public Use
  Company Number: FR-TEVA-236412ISR

PATIENT

DRUGS (1)
  1. AZILECT [Suspect]
     Route: 048

REACTIONS (4)
  - DECREASED APPETITE [None]
  - MAJOR DEPRESSION [None]
  - SUICIDAL IDEATION [None]
  - WEIGHT DECREASED [None]
